FAERS Safety Report 23598466 (Version 1)
Quarter: 2024Q1

REPORT INFORMATION
  Report Type: Spontaneous
  Country: US (occurrence: US)
  Receive Date: 20240306
  Receipt Date: 20240306
  Transmission Date: 20240410
  Serious: Yes (Hospitalization)
  Sender: FDA-Public Use
  Company Number: US-BRISTOL-MYERS SQUIBB COMPANY-2024-035528

PATIENT
  Age: 64 Year
  Sex: Male
  Weight: 92.53 kg

DRUGS (1)
  1. LENALIDOMIDE [Suspect]
     Active Substance: LENALIDOMIDE
     Indication: Plasma cell myeloma
     Dosage: EVERY OTHER DAY ON DAYS 1-21 EVERY 28 DAYS
     Route: 048
     Dates: start: 20210101

REACTIONS (2)
  - Hospitalisation [Unknown]
  - Intentional dose omission [Unknown]
